FAERS Safety Report 15439143 (Version 2)
Quarter: 2018Q4

REPORT INFORMATION
  Report Type: Spontaneous
  Country: US (occurrence: US)
  Receive Date: 20180928
  Receipt Date: 20181002
  Transmission Date: 20190204
  Serious: Yes (Other)
  Sender: FDA-Public Use
  Company Number: US-PFIZER INC-2018388583

PATIENT
  Age: 71 Year
  Sex: Male

DRUGS (4)
  1. SIROLIMUS. [Suspect]
     Active Substance: SIROLIMUS
     Indication: RENAL TRANSPLANT
     Dosage: 5 MG, ALTERNATE DAY [ONCE A DAY BY MOUTH]
     Route: 048
     Dates: start: 2014
  2. SIROLIMUS. [Suspect]
     Active Substance: SIROLIMUS
     Dosage: 6 MG, ALTERNATE DAY [ONCE A DAY BY MOUTH]
     Route: 048
     Dates: start: 2014
  3. PRALUENT [Suspect]
     Active Substance: ALIROCUMAB
     Indication: BLOOD CHOLESTEROL ABNORMAL
     Dosage: UNK UNK, WEEKLY
     Dates: end: 201807
  4. MYCOPHENOLATE [Concomitant]
     Active Substance: MYCOPHENOLIC ACID
     Indication: TRANSPLANT
     Dosage: 250 MG, 1X/DAY
     Route: 048

REACTIONS (1)
  - Drug level decreased [Recovering/Resolving]

NARRATIVE: CASE EVENT DATE: 2018
